FAERS Safety Report 8893086 (Version 1)
Quarter: 2012Q4

REPORT INFORMATION
  Report Type: 
  Country: US (occurrence: US)
  Receive Date: 20121107
  Receipt Date: 20121107
  Transmission Date: 20130627
  Serious: No
  Sender: FDA-Public Use
  Company Number: US-AMGEN-USASP2011053914

PATIENT
  Age: 43 Year
  Sex: Male
  Weight: 82.54 kg

DRUGS (2)
  1. ENBREL [Suspect]
     Indication: PSORIATIC ARTHROPATHY
     Dosage: 50 mg, qwk
     Route: 058
     Dates: start: 20110926
  2. HUMIRA [Concomitant]
     Indication: PSORIATIC ARTHROPATHY

REACTIONS (2)
  - Injection site pruritus [Unknown]
  - Injection site swelling [Unknown]
